FAERS Safety Report 5282349-6 (Version None)
Quarter: 2007Q1

REPORT INFORMATION
  Report Type: 
  Country: None (occurrence: None)
  Receive Date: 20070326
  Receipt Date: 20070314
  Transmission Date: 20070707
  Serious: Yes (Hospitalization, Other)
  Sender: FDA-Public Use
  Company Number: 2006RR-02643

PATIENT
  Age: 16 Month
  Sex: Female

DRUGS (5)
  1. AUGMENTIN [Suspect]
     Dosage: QD
     Dates: start: 19960101, end: 19960101
  2. LAMOTRIGINE [Suspect]
     Indication: GRAND MAL CONVULSION
     Dosage: 150 MG, QD, ORAL
     Route: 048
  3. PHENOXYMETHYLPENICILLIN [Suspect]
  4. PHENYTOIN [Suspect]
     Dosage: 9 MG
  5. FLUCONAZOLE [Concomitant]

REACTIONS (17)
  - ABNORMAL FAECES [None]
  - CANDIDIASIS [None]
  - CONVULSION [None]
  - DIARRHOEA [None]
  - DRUG INEFFECTIVE [None]
  - EAR INFECTION [None]
  - EPISTAXIS [None]
  - FRACTURE DELAYED UNION [None]
  - LACTOSE INTOLERANCE [None]
  - PHARYNGEAL OEDEMA [None]
  - PHARYNGITIS [None]
  - RASH [None]
  - RHINITIS [None]
  - UPPER LIMB FRACTURE [None]
  - UPPER RESPIRATORY TRACT INFECTION [None]
  - URINARY RETENTION [None]
  - VOMITING PROJECTILE [None]
